FAERS Safety Report 8360735-5 (Version None)
Quarter: 2012Q2

REPORT INFORMATION
  Report Type: 
  Country: None (occurrence: None)
  Receive Date: 20120515
  Receipt Date: 20120508
  Transmission Date: 20120825
  Serious: No
  Sender: FDA-Public Use
  Company Number: US-ASTRAZENECA-2012SE29740

PATIENT
  Age: 54 Year
  Sex: Male

DRUGS (2)
  1. SYMBICORT [Suspect]
     Dosage: 2 PUSSF AT 2.30 TO 3 AM AND 1 PUFF AROUND 7-8 PM
     Route: 055
  2. ADVAIR DISKUS 100/50 [Concomitant]

REACTIONS (4)
  - WHEEZING [None]
  - INTENTIONAL DRUG MISUSE [None]
  - OFF LABEL USE [None]
  - DRY MOUTH [None]
